FAERS Safety Report 8022781 (Version 3)
Quarter: 2012Q4

REPORT INFORMATION
  Report Type: Report from Study
  Country: GB (occurrence: GB)
  Receive Date: 20110706
  Receipt Date: 20121116
  Transmission Date: 20130627
  Serious: Yes (Hospitalization)
  Sender: FDA-Public Use
  Company Number: GB-JNJFOC-20110611909

PATIENT
  Age: 15 Year
  Sex: Female
  Weight: 40.2 kg

DRUGS (6)
  1. INFLIXIMAB, RECOMBINANT [Suspect]
     Indication: CROHN^S DISEASE
     Route: 042
     Dates: start: 20081208, end: 20090807
  2. HUMIRA [Concomitant]
     Dates: start: 20091002, end: 20110429
  3. AZATHIOPRINE [Concomitant]
  4. ONDANSETRON [Concomitant]
  5. OMEPRAZOLE [Concomitant]
  6. CODEINE PHOSPHATE [Concomitant]

REACTIONS (1)
  - Crohn^s disease [Recovered/Resolved]
